FAERS Safety Report 9555027 (Version 1)
Quarter: 2013Q3

REPORT INFORMATION
  Report Type: Spontaneous
  Country: US (occurrence: None)
  Receive Date: 20130909
  Receipt Date: 20130909
  Transmission Date: 20140515
  Serious: Yes (Other)
  Sender: FDA-Public Use
  Company Number: RB-51954-2013

PATIENT
  Age: 62 Year
  Sex: Female

DRUGS (1)
  1. MUCINEX [Suspect]
     Indication: PRODUCT USED FOR UNKNOWN INDICATION
     Dosage: 1200 MG 1X, TOOK 1 1200 MG ON 04-MAR-2013 ORAL)
     Route: 048
     Dates: start: 20130304

REACTIONS (2)
  - Dry throat [None]
  - Nasal dryness [None]
